FAERS Safety Report 14629015 (Version 11)
Quarter: 2020Q4

REPORT INFORMATION
  Report Type: Report from Study
  Country: US (occurrence: US)
  Receive Date: 20180313
  Receipt Date: 20201224
  Transmission Date: 20210113
  Serious: Yes (Hospitalization)
  Sender: FDA-Public Use
  Company Number: US-ROCHE-2082089

PATIENT
  Age: 39 Year
  Sex: Male
  Weight: 98.2 kg

DRUGS (55)
  1. PREDNISONE. [Concomitant]
     Active Substance: PREDNISONE
     Indication: PAIN
     Dates: start: 20141204
  2. IBUPROFEN. [Concomitant]
     Active Substance: IBUPROFEN
     Dates: start: 20190120
  3. PSEUDOEPHEDRINE. [Concomitant]
     Active Substance: PSEUDOEPHEDRINE HYDROCHLORIDE
     Indication: UPPER RESPIRATORY TRACT INFECTION
     Dates: start: 20180213, end: 20180217
  4. ZOFRAN [Concomitant]
     Active Substance: ONDANSETRON HYDROCHLORIDE
     Indication: INFLUENZA
     Dates: start: 20180221, end: 20180228
  5. ATORVASTATIN [Concomitant]
     Active Substance: ATORVASTATIN
     Dates: start: 20191006
  6. BACTRIM [Concomitant]
     Active Substance: SULFAMETHOXAZOLE\TRIMETHOPRIM
     Dates: start: 20180820, end: 20180829
  7. ADVIL [Concomitant]
     Active Substance: IBUPROFEN
     Indication: NASOPHARYNGITIS
     Dosage: NEXT DOSE: 28/AUG/2018
     Dates: start: 20190511, end: 20190514
  8. OCRELIZUMAB. [Suspect]
     Active Substance: OCRELIZUMAB
     Dosage: CYCLE 2 WEEK 24
     Route: 042
     Dates: start: 20130403, end: 20130403
  9. OCRELIZUMAB. [Suspect]
     Active Substance: OCRELIZUMAB
     Dosage: OLE-WEEK 96, CYCLE 9
     Route: 042
     Dates: start: 20160708, end: 20160708
  10. OCRELIZUMAB. [Suspect]
     Active Substance: OCRELIZUMAB
     Dosage: OLE-WEEK 168, CYCLE 12?SUBSEQUENT DOSES: 16/MAY/2018 (OLE-WEEK 192, LOT NUMBER: 1156605), 31/OCT/201
     Route: 042
     Dates: start: 20171213, end: 20171213
  11. BENADRYL [Concomitant]
     Active Substance: DIPHENHYDRAMINE HYDROCHLORIDE
     Dates: start: 20121018, end: 20121018
  12. IBUPROFEN. [Concomitant]
     Active Substance: IBUPROFEN
     Indication: UPPER RESPIRATORY TRACT INFECTION
     Dates: start: 20171128, end: 20171201
  13. IBUPROFEN. [Concomitant]
     Active Substance: IBUPROFEN
     Dates: start: 20190122
  14. TAMIFLU [Concomitant]
     Active Substance: OSELTAMIVIR PHOSPHATE
     Indication: INFLUENZA
     Dates: start: 20180221, end: 20180225
  15. OCRELIZUMAB. [Suspect]
     Active Substance: OCRELIZUMAB
     Dosage: DAY 15 CYCLE 1 WEEK 2
     Route: 042
     Dates: start: 20121031, end: 20121031
  16. OCRELIZUMAB. [Suspect]
     Active Substance: OCRELIZUMAB
     Dosage: OLE-WEEK 24, CYCLE 6
     Route: 042
     Dates: start: 20150223, end: 20150223
  17. OCRELIZUMAB. [Suspect]
     Active Substance: OCRELIZUMAB
     Dosage: OLE-WEEK 120, CYCLE 10
     Route: 042
     Dates: start: 20161222, end: 20161222
  18. OCRELIZUMAB. [Suspect]
     Active Substance: OCRELIZUMAB
     Dosage: OLE-WEEK 144, CYCLE 11
     Route: 042
     Dates: start: 20170614, end: 20170614
  19. PREDNISONE. [Concomitant]
     Active Substance: PREDNISONE
     Indication: INFLAMMATION
  20. ONDANSETRON [Concomitant]
     Active Substance: ONDANSETRON
     Dates: start: 20191006, end: 20191006
  21. TESSALON [Concomitant]
     Active Substance: BENZONATATE
     Indication: UPPER RESPIRATORY TRACT INFECTION
     Dates: start: 20190216, end: 20190220
  22. DEXAMETHASONE. [Concomitant]
     Active Substance: DEXAMETHASONE
     Indication: ARTHRALGIA
     Dates: start: 20181106, end: 20181220
  23. OCRELIZUMAB. [Suspect]
     Active Substance: OCRELIZUMAB
     Indication: RELAPSING-REMITTING MULTIPLE SCLEROSIS
     Dosage: DAY 1 CYCLE 1 WEEK 1?DUAL INFUSIONS ON DAYS 1 AND 15 FOR THE FIRST DOSE AND AS A SINGLE INFUSION FOR
     Route: 042
     Dates: start: 20121018, end: 20121018
  24. BENADRYL [Concomitant]
     Active Substance: DIPHENHYDRAMINE HYDROCHLORIDE
     Indication: PRURITUS
     Dosage: 31/OCT/2012, 03/APR/2013, 18/SEP/2013, 05/MAR/2014, 08/SEP/2014, 23/SEP/2014, 23/FEB/2015, 12/AUG/20
     Dates: start: 20121018
  25. ZOFRAN [Concomitant]
     Active Substance: ONDANSETRON HYDROCHLORIDE
     Dates: start: 20200812, end: 20200812
  26. NITROGLYCERIN. [Concomitant]
     Active Substance: NITROGLYCERIN
     Dates: start: 20191006, end: 20191006
  27. OMNIPAQUE [Concomitant]
     Active Substance: IOHEXOL
     Dates: start: 20191006, end: 20191006
  28. ADDERALL [Concomitant]
     Active Substance: AMPHETAMINE ASPARTATE\AMPHETAMINE SULFATE\DEXTROAMPHETAMINE SACCHARATE\DEXTROAMPHETAMINE SULFATE
     Indication: ATTENTION DEFICIT HYPERACTIVITY DISORDER
     Dates: start: 2015
  29. ADVIL [Concomitant]
     Active Substance: IBUPROFEN
     Indication: ARTHRALGIA
  30. PLACEBO [Suspect]
     Active Substance: UNSPECIFIED INGREDIENT
     Indication: RELAPSING-REMITTING MULTIPLE SCLEROSIS
     Dosage: SUBSEQUENT DOSE: 20/AUG/2014?LAST DOSE PRIOR TO SAE: 08/SEP/2014
     Route: 058
     Dates: start: 20121018
  31. OCRELIZUMAB. [Suspect]
     Active Substance: OCRELIZUMAB
     Dosage: OLE-WEEK 72, CYCLE 8
     Route: 042
     Dates: start: 20160202, end: 20160202
  32. METHYLPREDNISOLONE. [Concomitant]
     Active Substance: METHYLPREDNISOLONE
     Dosage: 31/OCT/2012, 03/APR/2013, 18/SEP/2013, 05/MAR/2014, 08/SEP/2014, 23/SEP/2014, 23/FEB/2015, 12/AUG/20
  33. MOBIC [Concomitant]
     Active Substance: MELOXICAM
     Indication: PAIN
     Dates: start: 20141204, end: 2015
  34. IBUPROFEN. [Concomitant]
     Active Substance: IBUPROFEN
     Indication: GASTROENTERITIS VIRAL
     Dates: start: 20170811, end: 20170824
  35. OCRELIZUMAB. [Suspect]
     Active Substance: OCRELIZUMAB
     Dosage: CYCLE 3 WEEK 48
     Route: 042
     Dates: start: 20130918, end: 20130918
  36. OCRELIZUMAB. [Suspect]
     Active Substance: OCRELIZUMAB
     Dosage: CYCLE 4 WEEK 72
     Route: 042
     Dates: start: 20140305, end: 20140305
  37. OCRELIZUMAB. [Suspect]
     Active Substance: OCRELIZUMAB
     Dosage: OLE-WEEK 48 CYCLE 7
     Route: 042
     Dates: start: 20150812, end: 20150812
  38. IBUPROFEN. [Concomitant]
     Active Substance: IBUPROFEN
     Dates: start: 20200216
  39. ZOFRAN [Concomitant]
     Active Substance: ONDANSETRON HYDROCHLORIDE
     Dates: start: 20200815, end: 20200815
  40. MORPHINE [Concomitant]
     Active Substance: MORPHINE
     Dates: start: 20191006, end: 20191006
  41. BENZONATATE. [Concomitant]
     Active Substance: BENZONATATE
     Indication: INFLUENZA
     Dates: start: 20180223, end: 20180304
  42. ACETAMINOPHEN. [Concomitant]
     Active Substance: ACETAMINOPHEN
     Dates: start: 20200811, end: 20200813
  43. NEXIUM [Concomitant]
     Active Substance: ESOMEPRAZOLE MAGNESIUM
     Dates: start: 20200811, end: 20200825
  44. OCRELIZUMAB. [Suspect]
     Active Substance: OCRELIZUMAB
     Dosage: DAY 15 CYCLE 5, WEEK 2
     Route: 042
     Dates: start: 20140923, end: 20140923
  45. IBUPROFEN. [Concomitant]
     Active Substance: IBUPROFEN
     Dates: start: 20180213
  46. FLU VACCINE [Concomitant]
     Active Substance: INFLUENZA VIRUS VACCINE
     Dosage: 1 VIAL
     Dates: start: 20191121, end: 20191121
  47. ALPRAZOLAM. [Concomitant]
     Active Substance: ALPRAZOLAM
     Indication: ANXIETY
     Dates: start: 2015, end: 201901
  48. TESSALON [Concomitant]
     Active Substance: BENZONATATE
     Indication: COUGH
     Dates: start: 20190122, end: 20190124
  49. BENZONATATE. [Concomitant]
     Active Substance: BENZONATATE
     Indication: NASOPHARYNGITIS
     Dates: start: 20170811, end: 20170824
  50. FIORICET [Concomitant]
     Active Substance: ACETAMINOPHEN\BUTALBITAL\CAFFEINE
     Dosage: 2 TABLET
     Dates: start: 20200812, end: 20200812
  51. OCRELIZUMAB. [Suspect]
     Active Substance: OCRELIZUMAB
     Indication: RELAPSING-REMITTING MULTIPLE SCLEROSIS
     Dosage: DAY 1 CYCLE 5, WEEK 1?600 MG INTRAVENOUS (IV) AS 300 MG INFUSIONS ON DAYS 1 AND 15 FOR THE FIRST DOS
     Route: 042
     Dates: start: 20140908, end: 20140908
  52. BENADRYL [Concomitant]
     Active Substance: DIPHENHYDRAMINE HYDROCHLORIDE
     Dates: start: 20130403, end: 20130403
  53. IBUPROFEN. [Concomitant]
     Active Substance: IBUPROFEN
     Indication: FOOT FRACTURE
     Dates: start: 20161212
  54. IBUPROFEN. [Concomitant]
     Active Substance: IBUPROFEN
     Dates: start: 20200811, end: 20200813
  55. ASPIRIN. [Concomitant]
     Active Substance: ASPIRIN

REACTIONS (2)
  - Atrial fibrillation [Recovered/Resolved]
  - Atrial fibrillation [Recovered/Resolved with Sequelae]

NARRATIVE: CASE EVENT DATE: 20180223
